FAERS Safety Report 8337933-X (Version None)
Quarter: 2012Q2

REPORT INFORMATION
  Report Type: 
  Country: None (occurrence: None)
  Receive Date: 20120504
  Receipt Date: 20120502
  Transmission Date: 20120825
  Serious: Yes (Hospitalization, Other)
  Sender: FDA-Public Use
  Company Number: JP-JNJFOC-20111108417

PATIENT
  Sex: Male
  Weight: 2.46 kg

DRUGS (5)
  1. METOCLOPRAMIDE [Suspect]
     Indication: FOETAL EXPOSURE DURING PREGNANCY
     Route: 064
  2. FENTANYL CITRATE [Suspect]
     Indication: FOETAL EXPOSURE DURING PREGNANCY
     Route: 064
     Dates: start: 20111025, end: 20111025
  3. FENTANYL-100 [Suspect]
     Indication: FOETAL EXPOSURE DURING PREGNANCY
     Route: 064
     Dates: start: 20050101, end: 20111027
  4. ULTIVA [Suspect]
     Indication: FOETAL EXPOSURE DURING PREGNANCY
     Route: 064
     Dates: start: 20111025, end: 20111025
  5. MORPHINE HYDROCHLORIDE [Suspect]
     Indication: FOETAL EXPOSURE DURING PREGNANCY
     Route: 064
     Dates: start: 20050101

REACTIONS (7)
  - FEEDING DISORDER [None]
  - DRUG WITHDRAWAL SYNDROME NEONATAL [None]
  - IRRITABILITY [None]
  - TRANSIENT TACHYPNOEA OF THE NEWBORN [None]
  - HYPERREFLEXIA [None]
  - PREMATURE BABY [None]
  - VOMITING [None]
